FAERS Safety Report 26169706 (Version 1)
Quarter: 2025Q4

REPORT INFORMATION
  Report Type: Spontaneous
  Country: EU (occurrence: EU)
  Receive Date: 20251217
  Receipt Date: 20251217
  Transmission Date: 20260118
  Serious: Yes (Other)
  Sender: SANDOZ
  Company Number: EU-SANDOZ-SDZ2025DE095166

PATIENT

DRUGS (1)
  1. ROSUVASTATIN [Suspect]
     Active Substance: ROSUVASTATIN
     Indication: Product used for unknown indication
     Dosage: 10 MG
     Route: 065

REACTIONS (2)
  - Haematochezia [Not Recovered/Not Resolved]
  - Blood urine present [Unknown]
